FAERS Safety Report 5060195-6 (Version None)
Quarter: 2006Q3

REPORT INFORMATION
  Report Type: 
  Country: None (occurrence: None)
  Receive Date: 20060718
  Receipt Date: 20060629
  Transmission Date: 20061208
  Serious: Yes (Hospitalization, Disabling)
  Sender: FDA-Public Use
  Company Number: JP200606005227

PATIENT
  Age: 82 Year
  Sex: Female

DRUGS (1)
  1. GEMZAR [Suspect]
     Indication: PANCREATIC CARCINOMA
     Dosage: 500 MG, OTHER, INTRAVENOUS
     Route: 042
     Dates: start: 20060418, end: 20060517

REACTIONS (5)
  - ACRODERMATITIS [None]
  - GENERALISED ERYTHEMA [None]
  - NECROSIS [None]
  - PURPURA [None]
  - SKIN ULCER [None]
